FAERS Safety Report 13510574 (Version 1)
Quarter: 2017Q2

REPORT INFORMATION
  Report Type: Report from Study
  Country: NL (occurrence: NL)
  Receive Date: 20170503
  Receipt Date: 20170503
  Transmission Date: 20170830
  Serious: Yes (Other)
  Sender: FDA-Public Use
  Company Number: NL-ASTRAZENECA-2017SE43599

PATIENT
  Age: 70 Year
  Sex: Male
  Weight: 93.7 kg

DRUGS (11)
  1. MEDI4736 [Suspect]
     Active Substance: DURVALUMAB
     Indication: NEOPLASM MALIGNANT
     Route: 042
     Dates: start: 20170328
  2. CARBASALATE CALCIUM [Concomitant]
     Active Substance: CARBASPIRIN
     Indication: ANTICOAGULANT THERAPY
     Route: 048
     Dates: start: 20161007
  3. PARACETAMOL [Concomitant]
     Active Substance: ACETAMINOPHEN
     Indication: HEADACHE
     Route: 048
     Dates: start: 20170328
  4. MEDI0562 [Suspect]
     Active Substance: TAVOLIXIZUMAB
     Indication: NEOPLASM MALIGNANT
     Route: 042
     Dates: start: 20170328, end: 20170328
  5. LOSARTAN. [Concomitant]
     Active Substance: LOSARTAN
     Indication: HYPERTENSION
     Route: 048
     Dates: start: 20161007
  6. BISOPROLOL [Concomitant]
     Active Substance: BISOPROLOL
     Indication: HYPERTENSION
     Route: 048
     Dates: start: 20161007
  7. ISOSORBIDE DINITRATE. [Concomitant]
     Active Substance: ISOSORBIDE DINITRATE
     Indication: ANGINA PECTORIS
     Route: 060
     Dates: start: 20161007
  8. MEDI0562 [Suspect]
     Active Substance: TAVOLIXIZUMAB
     Indication: NEOPLASM MALIGNANT
     Route: 042
     Dates: start: 20170411, end: 20170411
  9. SIMVASTATIN. [Concomitant]
     Active Substance: SIMVASTATIN
     Indication: HYPERCHOLESTEROLAEMIA
     Route: 048
     Dates: start: 20161007
  10. MEDI0562 [Suspect]
     Active Substance: TAVOLIXIZUMAB
     Indication: NEOPLASM MALIGNANT
     Route: 042
     Dates: start: 20170425, end: 20170425
  11. PARACETAMOL [Concomitant]
     Active Substance: ACETAMINOPHEN
     Indication: ARTHRITIS
     Route: 048
     Dates: start: 20170328

REACTIONS (4)
  - Infusion related reaction [Recovered/Resolved]
  - Chills [None]
  - Back pain [None]
  - Pyrexia [None]

NARRATIVE: CASE EVENT DATE: 20170425
